FAERS Safety Report 6342796-8 (Version None)
Quarter: 2009Q3

REPORT INFORMATION
  Report Type: 
  Country: None (occurrence: None)
  Receive Date: 20090908
  Receipt Date: 20090828
  Transmission Date: 20100115
  Serious: Yes (Other)
  Sender: FDA-Public Use
  Company Number: ES-JNJFOC-20090900925

PATIENT
  Sex: Male
  Weight: 75 kg

DRUGS (5)
  1. RISPERDAL CONSTA [Suspect]
     Route: 030
  2. RISPERDAL CONSTA [Suspect]
     Indication: SCHIZOPHRENIA
     Route: 030
  3. RUBIFEN [Suspect]
     Indication: DRUG USE FOR UNKNOWN INDICATION
     Route: 065
  4. RISPERIDONE [Concomitant]
     Indication: SCHIZOPHRENIA
     Route: 048
  5. TIROXINA [Concomitant]
     Indication: GOITRE
     Route: 065

REACTIONS (3)
  - AKATHISIA [None]
  - FATIGUE [None]
  - FLATULENCE [None]
